FAERS Safety Report 7892426-9 (Version None)
Quarter: 2011Q4

REPORT INFORMATION
  Report Type: 
  Country: None (occurrence: None)
  Receive Date: 20111104
  Receipt Date: 20111025
  Transmission Date: 20120403
  Serious: Yes (Hospitalization)
  Sender: FDA-Public Use
  Company Number: US-CELGENEUS-163-21880-11103284

PATIENT
  Sex: Female
  Weight: 62.652 kg

DRUGS (4)
  1. LISINOPRIL [Concomitant]
     Route: 048
     Dates: start: 20080101
  2. GABAPENTIN [Concomitant]
     Dosage: 300 MILLIGRAM
     Route: 048
     Dates: start: 20100101
  3. DMS [Concomitant]
     Dosage: 40 MILLIGRAM
     Route: 048
     Dates: start: 20110701
  4. REVLIMID [Suspect]
     Indication: MULTIPLE MYELOMA
     Dosage: 25 MILLIGRAM
     Route: 048
     Dates: start: 20110729

REACTIONS (3)
  - ASTHENIA [None]
  - BLOOD POTASSIUM DECREASED [None]
  - EYE PAIN [None]
